FAERS Safety Report 11906562 (Version 4)
Quarter: 2016Q3

REPORT INFORMATION
  Report Type: Report from Study
  Country: US (occurrence: US)
  Receive Date: 20160111
  Receipt Date: 20160919
  Transmission Date: 20161109
  Serious: Yes (Hospitalization)
  Sender: FDA-Public Use
  Company Number: PHEH2016US000760

PATIENT
  Age: 55 Year
  Sex: Female
  Weight: 71.66 kg

DRUGS (2)
  1. GILENYA [Suspect]
     Active Substance: FINGOLIMOD HYDROCHLORIDE
     Indication: MULTIPLE SCLEROSIS
     Dosage: 0.5 MG, QD
     Route: 048
     Dates: start: 20140723
  2. KEPPRA [Suspect]
     Active Substance: LEVETIRACETAM
     Indication: SEIZURE
     Dosage: UNK
     Route: 065

REACTIONS (5)
  - Dizziness [Not Recovered/Not Resolved]
  - Cerebral disorder [Unknown]
  - Seizure [Recovering/Resolving]
  - Loss of consciousness [Unknown]
  - Memory impairment [Unknown]

NARRATIVE: CASE EVENT DATE: 20160510
